FAERS Safety Report 6022215-1 (Version None)
Quarter: 2008Q4

REPORT INFORMATION
  Report Type: 
  Country: None (occurrence: None)
  Receive Date: 20081229
  Receipt Date: 20081219
  Transmission Date: 20090506
  Serious: No
  Sender: FDA-Public Use
  Company Number: FR-ELI_LILLY_AND_COMPANY-FR200812005379

PATIENT
  Age: 51 Year
  Sex: Male

DRUGS (4)
  1. CIALIS [Suspect]
     Indication: ERECTILE DYSFUNCTION
     Dosage: 2.5 MG, DAILY (1/D)
     Route: 048
     Dates: start: 20081209, end: 20081211
  2. HUMIRA [Concomitant]
     Indication: RHEUMATIC FEVER
     Dosage: UNK, UNKNOWN
     Route: 065
  3. TAREG [Concomitant]
     Indication: HYPERTENSION
     Dosage: UNK, UNKNOWN
     Route: 065
  4. SPECIAFOLDINE [Concomitant]
     Dosage: UNK, UNKNOWN
     Route: 065

REACTIONS (2)
  - EYELID OEDEMA [None]
  - VISION BLURRED [None]
